FAERS Safety Report 7692586-9 (Version None)
Quarter: 2011Q3

REPORT INFORMATION
  Report Type: 
  Country: None (occurrence: None)
  Receive Date: 20110819
  Receipt Date: 20110810
  Transmission Date: 20111222
  Serious: Yes (Other)
  Sender: FDA-Public Use
  Company Number: US-BIOGENIDEC-2011BI030316

PATIENT
  Sex: Male

DRUGS (2)
  1. AVONEX [Suspect]
     Route: 030
     Dates: start: 20030101
  2. AVONEX [Suspect]
     Indication: MULTIPLE SCLEROSIS
     Route: 030
     Dates: start: 19960101, end: 20030101

REACTIONS (8)
  - LOWER LIMB FRACTURE [None]
  - MUSCLE DISORDER [None]
  - THROMBOSIS [None]
  - GENERAL SYMPTOM [None]
  - DYSPHAGIA [None]
  - MEMORY IMPAIRMENT [None]
  - SKIN DISORDER [None]
  - LIGAMENT SPRAIN [None]
